FAERS Safety Report 8349293-9 (Version None)
Quarter: 2012Q2

REPORT INFORMATION
  Report Type: 
  Country: None (occurrence: None)
  Receive Date: 20120510
  Receipt Date: 20120509
  Transmission Date: 20120825
  Serious: Yes (Other)
  Sender: FDA-Public Use
  Company Number: PHHY2012JP039462

PATIENT
  Sex: Female

DRUGS (1)
  1. NEORAL [Suspect]
     Route: 048

REACTIONS (1)
  - ENDOMETRIOSIS [None]
